FAERS Safety Report 6557489-1 (Version None)
Quarter: 2010Q1

REPORT INFORMATION
  Report Type: 
  Country: None (occurrence: None)
  Receive Date: 20100129
  Receipt Date: 20100119
  Transmission Date: 20100710
  Serious: Yes (Disabling, Other)
  Sender: FDA-Public Use
  Company Number: US-ROCHE-677109

PATIENT
  Sex: Female
  Weight: 61.2 kg

DRUGS (4)
  1. ISOTRETINOIN [Suspect]
     Indication: ACNE
     Dosage: THE PATIENT WAS DISPENSED ACCUTANE 40 MG CAPSULE ON 20JUN06, 21AUG06,28SEP06
     Route: 048
  2. ISOTRETINOIN [Suspect]
     Dosage: OTHER INDICATION: SEBORRHEA, INTERRUPTED FOR TWO MONTHS
     Route: 048
     Dates: start: 20080911
  3. ISOTRETINOIN [Suspect]
     Dosage: VERY LOW DOSE
     Route: 048
     Dates: start: 20090905, end: 20091120
  4. AMNESTEEM [Suspect]
     Indication: DRUG USE FOR UNKNOWN INDICATION
     Route: 065
     Dates: end: 20091113

REACTIONS (3)
  - HEAD INJURY [None]
  - HEADACHE [None]
  - LHERMITTE'S SIGN [None]
